FAERS Safety Report 5950488-X (Version None)
Quarter: 2008Q4

REPORT INFORMATION
  Report Type: 
  Country: None (occurrence: None)
  Receive Date: 20081112
  Receipt Date: 20081105
  Transmission Date: 20090506
  Serious: Yes (Hospitalization)
  Sender: FDA-Public Use
  Company Number: PHHO2008US13257

PATIENT
  Sex: Female
  Weight: 115.8 kg

DRUGS (1)
  1. ZOLEDRONATE T29581+SOLINF [Suspect]
     Indication: BREAST CANCER
     Dosage: 4 MG, UNK
     Route: 042
     Dates: start: 20080508

REACTIONS (6)
  - ARTHRALGIA [None]
  - ARTHRITIS INFECTIVE [None]
  - DEBRIDEMENT [None]
  - JOINT IRRIGATION [None]
  - JOINT SWELLING [None]
  - KNEE ARTHROPLASTY [None]
